FAERS Safety Report 17751570 (Version 1)
Quarter: 2020Q2

REPORT INFORMATION
  Report Type: Spontaneous
  Country: ES (occurrence: ES)
  Receive Date: 20200506
  Receipt Date: 20200506
  Transmission Date: 20200714
  Serious: Yes (Hospitalization)
  Sender: FDA-Public Use
  Company Number: ES-PFIZER INC-2020178641

PATIENT
  Age: 49 Year
  Sex: Male

DRUGS (3)
  1. ENOXAPARIN SODIUM. [Suspect]
     Active Substance: ENOXAPARIN SODIUM
     Dosage: 70 MG, ONCE A DAY
     Route: 058
     Dates: start: 20200223, end: 20200303
  2. AMOXICILLIN/CLAVULANIC ACID [Suspect]
     Active Substance: AMOXICILLIN\CLAVULANIC ACID
     Indication: PNEUMONIA
     Dosage: 1 DF, TWICE A DAY
     Route: 042
     Dates: start: 20200223, end: 20200307
  3. VORICONAZOLE. [Suspect]
     Active Substance: VORICONAZOLE
     Indication: RESPIRATORY TRACT INFECTION FUNGAL
     Dosage: 200 MG, TWICE A DAY
     Route: 042
     Dates: start: 20200225, end: 20200308

REACTIONS (3)
  - Coagulopathy [Recovering/Resolving]
  - Hyperbilirubinaemia [Recovering/Resolving]
  - Hepatitis cholestatic [Recovering/Resolving]

NARRATIVE: CASE EVENT DATE: 20200301
